FAERS Safety Report 8120245-7 (Version None)
Quarter: 2012Q1

REPORT INFORMATION
  Report Type: 
  Country: None (occurrence: None)
  Receive Date: 20120207
  Receipt Date: 20120130
  Transmission Date: 20120608
  Serious: Yes (Other)
  Sender: FDA-Public Use
  Company Number: PHHY2012JP006891

PATIENT
  Age: 62 Year
  Sex: Female

DRUGS (1)
  1. ZOLEDRONIC ACID [Suspect]
     Indication: METASTASES TO BONE
     Dosage: UNK UKN, UNK
     Route: 041
     Dates: start: 20080101, end: 20100801

REACTIONS (6)
  - INFECTION [None]
  - TOOTHACHE [None]
  - EXPOSED BONE IN JAW [None]
  - CELLULITIS [None]
  - OSTEONECROSIS OF JAW [None]
  - FISTULA [None]
